FAERS Safety Report 4308815-5 (Version None)
Quarter: 2004Q1

REPORT INFORMATION
  Report Type: 
  Country: None (occurrence: None)
  Receive Date: 20040227
  Receipt Date: 20040217
  Transmission Date: 20041129
  Serious: Yes (Other)
  Sender: FDA-Public Use
  Company Number: 2003038927

PATIENT
  Sex: Female
  Weight: 72.1219 kg

DRUGS (5)
  1. NARDIL [Suspect]
     Indication: DEPRESSION
     Dosage: 45 MG (TID), ORAL
     Route: 048
  2. HYDRALAZINE HYDROCHLORIDE (HYDRALAZINE HYDROCHLORIDE) [Suspect]
     Indication: PULMONARY HYPERTENSION
     Dates: start: 20030930
  3. ESTRADIOL [Concomitant]
  4. LEVOTHYROXINE SODIUM [Concomitant]
  5. LOSARTAN POTASSIUM (LOSARTAN POTASSIUM) [Concomitant]

REACTIONS (10)
  - BRADYCARDIA [None]
  - DEPRESSION [None]
  - DIZZINESS [None]
  - DRUG INEFFECTIVE [None]
  - ERYTHEMA [None]
  - FEELING ABNORMAL [None]
  - JUGULAR VEIN DISTENSION [None]
  - ORTHOSTATIC HYPOTENSION [None]
  - PULMONARY HYPERTENSION [None]
  - SICK SINUS SYNDROME [None]
